FAERS Safety Report 9475583 (Version 1)
Quarter: 2013Q3

REPORT INFORMATION
  Report Type: Spontaneous
  Country: US (occurrence: None)
  Receive Date: 20130822
  Receipt Date: 20130822
  Transmission Date: 20140515
  Serious: Yes (Other)
  Sender: FDA-Public Use
  Company Number: None

PATIENT
  Age: 71 Year
  Sex: Male
  Weight: 105.2 kg

DRUGS (2)
  1. CYTOXAN [Suspect]
     Indication: METASTATIC MALIGNANT MELANOMA
     Dosage: D1
     Route: 048
     Dates: start: 20130520
  2. IPILIMUMAB [Suspect]
     Indication: METASTATIC MALIGNANT MELANOMA
     Dosage: D3
     Route: 042
     Dates: start: 20130522

REACTIONS (1)
  - Diarrhoea [None]
